FAERS Safety Report 6899286-3 (Version None)
Quarter: 2010Q3

REPORT INFORMATION
  Report Type: 
  Country: None (occurrence: None)
  Receive Date: 20100802
  Receipt Date: 20080610
  Transmission Date: 20110219
  Serious: No
  Sender: FDA-Public Use
  Company Number: US-PFIZER INC-2006068941

PATIENT
  Sex: Male
  Weight: 113.4 kg

DRUGS (18)
  1. LYRICA [Suspect]
     Indication: DIABETIC NEUROPATHY
  2. NEURONTIN [Suspect]
     Indication: DIABETIC NEUROPATHY
  3. XANAX [Concomitant]
  4. AMBIEN [Concomitant]
  5. NOVOLIN N [Concomitant]
  6. AMITRIPTYLINE HYDROCHLORIDE [Concomitant]
  7. MOTRIN [Concomitant]
  8. NEXIUM [Concomitant]
  9. LASIX [Concomitant]
  10. IRBESARTAN [Concomitant]
  11. LOPID [Concomitant]
  12. TOPROL-XL [Concomitant]
  13. PRAVACHOL [Concomitant]
  14. GLUCOVANCE [Concomitant]
  15. ZOLOFT [Concomitant]
  16. PLAQUENIL [Concomitant]
  17. NOVOLIN R [Concomitant]
  18. ACETYLSALICYLIC ACID SRT [Concomitant]

REACTIONS (7)
  - BURNING SENSATION [None]
  - ERYTHEMA [None]
  - FATIGUE [None]
  - IRRITABILITY [None]
  - MOOD ALTERED [None]
  - OEDEMA PERIPHERAL [None]
  - PARAESTHESIA [None]
